FAERS Safety Report 5522192-3 (Version None)
Quarter: 2007Q4

REPORT INFORMATION
  Report Type: 
  Country: None (occurrence: None)
  Receive Date: 20071120
  Receipt Date: 20071114
  Transmission Date: 20080405
  Serious: Yes (Hospitalization)
  Sender: FDA-Public Use
  Company Number: B0301510A

PATIENT
  Age: 70 Year
  Sex: Female

DRUGS (5)
  1. ZINNAT INJECTABLE [Suspect]
     Dosage: 1.5G TWICE PER DAY
     Route: 042
     Dates: start: 20030329, end: 20030331
  2. TOPALGIC ( FRANCE ) [Suspect]
     Indication: FEMUR FRACTURE
     Dosage: 100MG THREE TIMES PER DAY
     Route: 042
     Dates: start: 20030330, end: 20030331
  3. ATARAX [Concomitant]
     Route: 065
  4. LEXOMIL [Concomitant]
     Route: 065
  5. LOVENOX [Concomitant]
     Route: 065

REACTIONS (9)
  - ACUTE GENERALISED EXANTHEMATOUS PUSTULOSIS [None]
  - DRY SKIN [None]
  - INFUSION SITE ERYTHEMA [None]
  - NIKOLSKY'S SIGN [None]
  - OEDEMA [None]
  - PRURIGO [None]
  - SKIN BURNING SENSATION [None]
  - STAPHYLOCOCCAL INFECTION [None]
  - STAPHYLOCOCCAL SEPSIS [None]
